FAERS Safety Report 6264497-7 (Version None)
Quarter: 2009Q3

REPORT INFORMATION
  Report Type: 
  Country: None (occurrence: None)
  Receive Date: 20090708
  Receipt Date: 20090624
  Transmission Date: 20100115
  Serious: Yes (Hospitalization)
  Sender: FDA-Public Use
  Company Number: SPV1-2009-01049

PATIENT
  Age: 68 Year
  Sex: Female

DRUGS (10)
  1. FOSRENOL [Suspect]
     Indication: HYPERCALCAEMIA
     Dosage: 750 MG, UNK, ORAL
     Route: 048
     Dates: start: 20090508, end: 20090513
  2. FOSRENOL [Suspect]
     Indication: HYPERPHOSPHATAEMIA
     Dosage: 750 MG, UNK, ORAL
     Route: 048
     Dates: start: 20090508, end: 20090513
  3. MICARDIS [Concomitant]
  4. LANDEL (EFONIDIPINE HYDROCHLORIDE) [Concomitant]
  5. SIGMART (NICORANDIL) [Concomitant]
  6. ADALAT CC [Concomitant]
  7. KALIMATE (SODIUM POLYSTYRENE SULFONATE) [Concomitant]
  8. RABEPRAZOLE SODIUM [Concomitant]
  9. GASMOTIN (MOSAPRIDE CITRATE) [Concomitant]
  10. STROCAIN (OXETACAINE) [Concomitant]

REACTIONS (2)
  - DIALYSIS [None]
  - LARGE INTESTINAL ULCER HAEMORRHAGE [None]
